FAERS Safety Report 8339693 (Version 5)
Quarter: 2012Q4

REPORT INFORMATION
  Report Type: Report from Study
  Country: CA (occurrence: CA)
  Receive Date: 20120117
  Receipt Date: 20121225
  Transmission Date: 20130627
  Serious: Yes (Hospitalization)
  Sender: FDA-Public Use
  Company Number: CA-JNJFOC-20120105224

PATIENT
  Age: 50 Year
  Sex: Female
  Weight: 83.01 kg

DRUGS (4)
  1. STELARA [Suspect]
     Indication: PSORIASIS
     Route: 058
     Dates: start: 20090319, end: 20111015
  2. LYRICA [Concomitant]
  3. CORTICOSTEROIDS [Concomitant]
     Indication: PSORIASIS
  4. TEGRETOL [Concomitant]

REACTIONS (5)
  - Psoriatic arthropathy [Unknown]
  - Cervical myelopathy [Recovering/Resolving]
  - Fall [Unknown]
  - Drug ineffective [Unknown]
  - Psoriasis [Unknown]
